FAERS Safety Report 9269582 (Version 2)
Quarter: 2013Q2

REPORT INFORMATION
  Report Type: Spontaneous
  Country: US (occurrence: US)
  Receive Date: 20130503
  Receipt Date: 20130617
  Transmission Date: 20140414
  Serious: Yes (Other)
  Sender: FDA-Public Use
  Company Number: US-JNJFOC-20130412926

PATIENT
  Age: 52 Year
  Sex: Female
  Weight: 66.68 kg

DRUGS (24)
  1. REMICADE [Suspect]
     Indication: RHEUMATOID ARTHRITIS
     Route: 042
     Dates: end: 20130313
  2. REMICADE [Suspect]
     Indication: RHEUMATOID ARTHRITIS
     Route: 042
     Dates: end: 201301
  3. REMICADE [Suspect]
     Indication: RHEUMATOID ARTHRITIS
     Route: 042
     Dates: start: 20130416
  4. REMICADE [Suspect]
     Indication: RHEUMATOID ARTHRITIS
     Route: 042
     Dates: start: 20120330
  5. REMICADE [Suspect]
     Indication: RHEUMATOID ARTHRITIS
     Route: 042
     Dates: start: 20130212, end: 20130212
  6. METHADONE [Suspect]
     Indication: PAIN MANAGEMENT
     Route: 065
  7. MORPHINE [Suspect]
     Indication: PAIN
     Route: 065
     Dates: start: 20130419
  8. LIALDA [Concomitant]
     Indication: COLITIS ULCERATIVE
     Dosage: IN THE MORNING
     Route: 065
  9. CELEBREX [Concomitant]
     Indication: RHEUMATOID ARTHRITIS
     Route: 065
  10. LEVOXYL [Concomitant]
     Route: 065
  11. ESTROPIPATE [Concomitant]
     Route: 065
  12. VYVANSE [Concomitant]
     Route: 065
  13. CYMBALTA [Concomitant]
     Route: 065
  14. ALPRAZOLAM [Concomitant]
     Dosage: ONCE EVERY 6-8 HOURS AS NEEDED
     Route: 065
  15. POSTURE D CALCIUM [Concomitant]
     Route: 065
  16. MULTIVITAMINS [Concomitant]
     Route: 065
  17. BIOTIN [Concomitant]
     Route: 065
  18. POTASSIUM [Concomitant]
     Route: 065
  19. PROBIOTIC [Concomitant]
     Route: 065
  20. TIZANIDINE [Concomitant]
     Route: 065
  21. MORPHINE SULFATE [Concomitant]
     Dosage: 1-3 TIMES DAILY
     Route: 065
  22. ENBREL [Concomitant]
     Route: 065
  23. DICYCLOMINE [Concomitant]
     Route: 065
  24. ZYRTEC [Concomitant]
     Route: 065

REACTIONS (6)
  - Pain [Not Recovered/Not Resolved]
  - Fatigue [Not Recovered/Not Resolved]
  - Feeling abnormal [Not Recovered/Not Resolved]
  - Drug ineffective [Not Recovered/Not Resolved]
  - Anxiety [Not Recovered/Not Resolved]
  - Poor quality sleep [Not Recovered/Not Resolved]
